FAERS Safety Report 7421567-5 (Version None)
Quarter: 2011Q2

REPORT INFORMATION
  Report Type: 
  Country: None (occurrence: None)
  Receive Date: 20110418
  Receipt Date: 20110415
  Transmission Date: 20111010
  Serious: Yes (Other)
  Sender: FDA-Public Use
  Company Number: PHHO2011DE03543

PATIENT
  Sex: Female
  Weight: 58 kg

DRUGS (3)
  1. FTY [Suspect]
     Dosage: NO TREATMENT
     Dates: start: 20110223, end: 20110403
  2. FTY [Suspect]
     Dosage: 0.5 MG, QD
     Route: 048
     Dates: start: 20110404
  3. FTY [Suspect]
     Indication: MULTIPLE SCLEROSIS
     Dosage: 0.5 MG, QD
     Route: 048
     Dates: start: 20100920, end: 20110222

REACTIONS (1)
  - CYANOSIS [None]
